FAERS Safety Report 6669498-2 (Version None)
Quarter: 2010Q2

REPORT INFORMATION
  Report Type: 
  Country: None (occurrence: None)
  Receive Date: 20100406
  Receipt Date: 20100330
  Transmission Date: 20101027
  Serious: Yes (Hospitalization)
  Sender: FDA-Public Use
  Company Number: PHHO2009US01945

PATIENT
  Sex: Female
  Weight: 85.1 kg

DRUGS (4)
  1. AFINITOR [Suspect]
     Indication: BREAST CANCER
     Dosage: 30MG, WEEKLY
     Route: 048
     Dates: start: 20070924, end: 20090212
  2. TRASTUZUMAB [Suspect]
     Indication: BREAST CANCER
     Dosage: 2MG/KG, WEEKLY
     Route: 042
     Dates: start: 20070924, end: 20090212
  3. PACLITAXEL [Suspect]
     Indication: BREAST CANCER
     Dosage: 80MG/M2, WEEKLY
     Route: 042
     Dates: start: 20070924, end: 20090212
  4. PACLITAXEL [Suspect]
     Dosage: 80MG/M2, WEEKLY
     Route: 042

REACTIONS (7)
  - BRONCHOPNEUMONIA [None]
  - CLOSTRIDIUM DIFFICILE COLITIS [None]
  - FEBRILE NEUTROPENIA [None]
  - HYPOKALAEMIA [None]
  - PYREXIA [None]
  - THROMBOCYTOPENIA [None]
  - WHITE BLOOD CELL COUNT DECREASED [None]
